FAERS Safety Report 23551670 (Version 1)
Quarter: 2024Q1

REPORT INFORMATION
  Report Type: Spontaneous
  Country: IT (occurrence: IT)
  Receive Date: 20240222
  Receipt Date: 20240222
  Transmission Date: 20240409
  Serious: Yes (Hospitalization)
  Sender: FDA-Public Use
  Company Number: None

PATIENT
  Age: 24 Year
  Sex: Male

DRUGS (2)
  1. ETOPOSIDE [Suspect]
     Active Substance: ETOPOSIDE
     Indication: Germ cell neoplasm
     Dosage: 190 MUG DL 10/30 TO 11/03
     Route: 065
     Dates: start: 20231030
  2. CARBOPLATIN [Suspect]
     Active Substance: CARBOPLATIN
     Indication: Germ cell neoplasm
     Dosage: 750 MG 30 E 31/10
     Route: 065
     Dates: start: 20231030

REACTIONS (2)
  - Febrile neutropenia [Recovered/Resolved]
  - Appendicitis [Recovered/Resolved]

NARRATIVE: CASE EVENT DATE: 20231115
